FAERS Safety Report 16894978 (Version 1)
Quarter: 2019Q4

REPORT INFORMATION
  Report Type: Spontaneous
  Country: US (occurrence: US)
  Receive Date: 20191008
  Receipt Date: 20191008
  Transmission Date: 20200122
  Serious: No
  Sender: FDA-Public Use
  Company Number: US-INDIVIOR US-INDV-120309-2019

PATIENT
  Age: 42 Year
  Sex: Female
  Weight: 69.39 kg

DRUGS (6)
  1. SUBOXONE [Suspect]
     Active Substance: BUPRENORPHINE HYDROCHLORIDE\NALOXONE HYDROCHLORIDE
     Dosage: 8 MG HALF A FILM, BID
     Route: 060
     Dates: start: 2019, end: 2019
  2. GABAPENTIN. [Concomitant]
     Active Substance: GABAPENTIN
     Indication: NERVOUS SYSTEM DISORDER
     Dosage: UNK
     Route: 065
  3. NORTRIPTYLINE [Concomitant]
     Active Substance: NORTRIPTYLINE
     Indication: NERVOUS SYSTEM DISORDER
     Dosage: UNK
     Route: 065
  4. SUBOXONE [Suspect]
     Active Substance: BUPRENORPHINE HYDROCHLORIDE\NALOXONE HYDROCHLORIDE
     Indication: DRUG DEPENDENCE
     Dosage: 8 MILLIGRAM, BID
     Route: 060
     Dates: start: 2016, end: 2019
  5. SUBOXONE [Suspect]
     Active Substance: BUPRENORPHINE HYDROCHLORIDE\NALOXONE HYDROCHLORIDE
     Dosage: 8 MILLIGRAM, BID
     Route: 060
     Dates: start: 2019, end: 2019
  6. BUSPAR [Concomitant]
     Active Substance: BUSPIRONE HYDROCHLORIDE
     Indication: ANXIETY
     Dosage: UNK
     Route: 065

REACTIONS (9)
  - Urinary retention [Recovered/Resolved]
  - Blood pressure increased [Not Recovered/Not Resolved]
  - Wrong technique in product usage process [Recovered/Resolved]
  - Therapeutic product ineffective [Recovered/Resolved]
  - Generalised oedema [Not Recovered/Not Resolved]
  - Weight increased [Not Recovered/Not Resolved]
  - Inappropriate schedule of product administration [Recovered/Resolved]
  - Constipation [Recovered/Resolved]
  - Intentional underdose [Recovered/Resolved]

NARRATIVE: CASE EVENT DATE: 2016
